FAERS Safety Report 7547063-2 (Version None)
Quarter: 2011Q2

REPORT INFORMATION
  Report Type: 
  Country: None (occurrence: None)
  Receive Date: 20110614
  Receipt Date: 20110609
  Transmission Date: 20111010
  Serious: Yes (Death, Hospitalization)
  Sender: FDA-Public Use
  Company Number: US-SANOFI-AVENTIS-2011SA037144

PATIENT
  Age: 83 Year
  Sex: Male
  Weight: 83.9 kg

DRUGS (4)
  1. NORVASC [Concomitant]
  2. PLAVIX [Suspect]
     Route: 048
     Dates: start: 20070401, end: 20101023
  3. VITAMIN TAB [Concomitant]
  4. ATORVASTATIN [Suspect]
     Route: 048
     Dates: start: 20000101, end: 20101023

REACTIONS (3)
  - LUNG NEOPLASM MALIGNANT [None]
  - MALAISE [None]
  - CONTUSION [None]
